FAERS Safety Report 19905565 (Version 2)
Quarter: 2021Q4

REPORT INFORMATION
  Report Type: Report from Study
  Country: CA (occurrence: CA)
  Receive Date: 20211001
  Receipt Date: 20211014
  Transmission Date: 20220303
  Serious: Yes (Other)
  Sender: FDA-Public Use
  Company Number: CA-SAMSUNG BIOEPIS-SB-2021-21729

PATIENT
  Age: 57 Year
  Sex: Female

DRUGS (1)
  1. ETANERCEPT [Suspect]
     Active Substance: ETANERCEPT
     Indication: Rheumatoid arthritis
     Route: 065
     Dates: start: 20210801

REACTIONS (9)
  - Ill-defined disorder [Not Recovered/Not Resolved]
  - Alopecia [Unknown]
  - Rash [Not Recovered/Not Resolved]
  - Rash papular [Unknown]
  - Injection site rash [Unknown]
  - Injection site mass [Unknown]
  - Injection site pruritus [Not Recovered/Not Resolved]
  - Scar [Unknown]
  - Pain [Unknown]

NARRATIVE: CASE EVENT DATE: 20210912
